FAERS Safety Report 10240200 (Version 1)
Quarter: 2014Q2

REPORT INFORMATION
  Report Type: Spontaneous
  Country: US (occurrence: US)
  Receive Date: 20140617
  Receipt Date: 20140617
  Transmission Date: 20141212
  Serious: Yes (Other)
  Sender: FDA-Public Use
  Company Number: US-BEH-2014043026

PATIENT
  Sex: Male
  Weight: 113 kg

DRUGS (12)
  1. ZEMAIRA [Suspect]
     Indication: ALPHA-1 ANTI-TRYPSIN DEFICIENCY
     Route: 042
  2. ACETAMINOPHEN [Concomitant]
  3. DIPHENHYDRAMINE [Concomitant]
  4. SODIUM CHLORIDE [Concomitant]
  5. EPI PEN [Concomitant]
  6. LMX [Concomitant]
  7. BYDUREON [Concomitant]
  8. FOSINOPRIL SODIUM [Concomitant]
  9. TRICOR [Concomitant]
  10. ASPIRIN [Concomitant]
  11. CRESTOR [Concomitant]
  12. METOPROLOL [Concomitant]

REACTIONS (2)
  - Pneumonia [Unknown]
  - Headache [Unknown]
